FAERS Safety Report 22314146 (Version 1)
Quarter: 2023Q2

REPORT INFORMATION
  Report Type: Spontaneous
  Country: US (occurrence: US)
  Receive Date: 20230512
  Receipt Date: 20230512
  Transmission Date: 20230722
  Serious: Yes (Other)
  Sender: FDA-Public Use
  Company Number: US-PFIZER INC-202300186367

PATIENT
  Age: 37 Year
  Sex: Female
  Weight: 68.04 kg

DRUGS (2)
  1. NURTEC ODT [Suspect]
     Active Substance: RIMEGEPANT SULFATE
     Indication: Migraine
     Dosage: 75 MG, AS NEEDED (AFTER THE ONSET OF A MIGRAINE)
     Dates: start: 202303
  2. NURTEC ODT [Suspect]
     Active Substance: RIMEGEPANT SULFATE
     Dosage: 75 DF, AS NEEDED
     Dates: start: 202304

REACTIONS (2)
  - Brain neoplasm [Unknown]
  - Tinnitus [Unknown]

NARRATIVE: CASE EVENT DATE: 20230401
